FAERS Safety Report 22591305 (Version 6)
Quarter: 2023Q4

REPORT INFORMATION
  Report Type: Report from Study
  Country: IT (occurrence: IT)
  Receive Date: 20230612
  Receipt Date: 20231016
  Transmission Date: 20240110
  Serious: Yes (Disabling, Other)
  Sender: FDA-Public Use
  Company Number: IT-002147023-NVSC2023IT125666

PATIENT

DRUGS (22)
  1. RUXOLITINIB [Suspect]
     Active Substance: RUXOLITINIB
     Indication: Myelofibrosis
     Dosage: 20 MG, BID
     Route: 048
     Dates: start: 20221109
  2. RUXOLITINIB [Suspect]
     Active Substance: RUXOLITINIB
     Dosage: UNK (CYCLE 8)
     Route: 065
     Dates: start: 20230412, end: 20230420
  3. BETAMETHASONE SODIUM PHOSPHATE [Concomitant]
     Active Substance: BETAMETHASONE SODIUM PHOSPHATE
     Indication: Product used for unknown indication
     Dosage: 3 MG, QD
     Route: 048
     Dates: start: 20230414
  4. CEFTRIAXONE SODIUM [Concomitant]
     Active Substance: CEFTRIAXONE SODIUM
     Indication: Product used for unknown indication
     Dosage: 1 G, QD
     Route: 030
     Dates: start: 20230414, end: 20230418
  5. IBUPROFEN [Concomitant]
     Active Substance: IBUPROFEN
     Indication: Antiinflammatory therapy
     Dosage: UNK
     Route: 065
     Dates: start: 20230418
  6. PANTOPRAZOLE SODIUM [Concomitant]
     Active Substance: PANTOPRAZOLE SODIUM
     Indication: Gastritis prophylaxis
     Dosage: 40 MG, QD
     Route: 048
     Dates: start: 20230418
  7. BRIVUDINE [Concomitant]
     Active Substance: BRIVUDINE
     Indication: Product used for unknown indication
     Dosage: 125 MG, QD
     Route: 048
     Dates: start: 20230420, end: 20230428
  8. PREDNISONE [Concomitant]
     Active Substance: PREDNISONE
     Indication: Product used for unknown indication
     Dosage: 25 MG, QD
     Route: 048
     Dates: start: 20230420, end: 20230426
  9. PREDNISONE [Concomitant]
     Active Substance: PREDNISONE
     Dosage: 25 MG, QD
     Route: 048
     Dates: start: 20230427
  10. PREDNISONE [Concomitant]
     Active Substance: PREDNISONE
     Dosage: 12.5 MG, QD ( EVERY OTHER DAY)
     Route: 048
     Dates: end: 20230503
  11. PREDNISONE [Concomitant]
     Active Substance: PREDNISONE
     Dosage: 12.5 MG, QD (OTHER DAY FOR 3 ADMINISTRATIONS)
     Route: 065
     Dates: start: 20230504
  12. PREDNISONE [Concomitant]
     Active Substance: PREDNISONE
     Dosage: 12.5 MG, QD (OTHER DAY FOR 3 ADMINISTRATIONS)
     Route: 065
     Dates: start: 20230504
  13. LYRICA [Concomitant]
     Active Substance: PREGABALIN
     Indication: Product used for unknown indication
     Dosage: 75 MG, BID
     Route: 048
     Dates: start: 20230420
  14. ACETAMINOPHEN\CODEINE PHOSPHATE [Concomitant]
     Active Substance: ACETAMINOPHEN\CODEINE PHOSPHATE
     Indication: Product used for unknown indication
     Dosage: 1000 MG, PRN
     Route: 065
  15. NALOXONE HYDROCHLORIDE\OXYCODONE HYDROCHLORIDE [Concomitant]
     Active Substance: NALOXONE HYDROCHLORIDE\OXYCODONE HYDROCHLORIDE
     Indication: Product used for unknown indication
     Dosage: 1 DOSAGE FORM, QD
     Route: 048
  16. MOVICOL [Concomitant]
     Active Substance: POLYETHYLENE GLYCOL 3350\POTASSIUM CHLORIDE\SODIUM BICARBONATE\SODIUM CHLORIDE
     Indication: Product used for unknown indication
     Dosage: 1 DOSAGE FORM, QD (1 SACHET)
     Route: 048
  17. LACTULOSE [Concomitant]
     Active Substance: LACTULOSE
     Indication: Constipation prophylaxis
     Dosage: UNK
     Route: 065
  18. PENSULVIT [Concomitant]
     Indication: Product used for unknown indication
     Dosage: UNK (1 APPLICATION)
     Route: 065
  19. HYALISTIL [Concomitant]
     Indication: Product used for unknown indication
     Dosage: UNK
     Route: 065
  20. CEFUROXIME [Concomitant]
     Active Substance: CEFUROXIME
     Indication: Product used for unknown indication
     Dosage: 500 MG, BID
     Route: 065
     Dates: start: 20230428, end: 20230502
  21. GENTALYN BETA [Concomitant]
     Indication: Product used for unknown indication
     Dosage: UNK
     Route: 065
     Dates: start: 20230502
  22. PARAFFIN [Concomitant]
     Active Substance: PARAFFIN
     Indication: Product used for unknown indication
     Dosage: UNK (OIL)
     Route: 065

REACTIONS (8)
  - Bacterial infection [Unknown]
  - Occipital neuralgia [Unknown]
  - Herpes zoster oticus [Recovered/Resolved with Sequelae]
  - Herpes zoster [Unknown]
  - Ear infection [Unknown]
  - Streptococcal infection [Unknown]
  - Trigeminal neuralgia [Unknown]
  - Gait disturbance [Unknown]

NARRATIVE: CASE EVENT DATE: 20230410
